FAERS Safety Report 9252521 (Version 1)
Quarter: 2013Q1

REPORT INFORMATION
  Report Type: Spontaneous
  Country: US (occurrence: None)
  Receive Date: 20130305
  Receipt Date: 20130305
  Transmission Date: 20140127
  Serious: Yes (Other)
  Sender: FDA-Public Use
  Company Number: 163-21880-12090659

PATIENT
  Age: 80 Year
  Sex: Male

DRUGS (4)
  1. REVLIMID (LENALIDOMIDE) [Suspect]
     Indication: PLASMA CELL MYELOMA
     Dosage: 25 MG, 21 IN 21 D, PO
     Route: 048
     Dates: start: 20080317, end: 2008
  2. FRAGMIN (HEPARIN-FRACTION, SODIUM SALT) (UNKNOWN) [Concomitant]
  3. CALCIUM (CALCIUM) (UNKNOWN) [Concomitant]
  4. OMEGA-3 FISH OIL/VITAMIN D3 (OMEGA-3 TRIGLYCERIDES W/VITAMIN D NOS/XANTOF.) (UNKNOWN) [Concomitant]

REACTIONS (1)
  - Thrombosis [None]
